FAERS Safety Report 5669615-7 (Version None)
Quarter: 2008Q1

REPORT INFORMATION
  Report Type: 
  Country: None (occurrence: None)
  Receive Date: 20080317
  Receipt Date: 20080306
  Transmission Date: 20080703
  Serious: Yes (Other)
  Sender: FDA-Public Use
  Company Number: PHEH2008US02569

PATIENT
  Age: 58 Year
  Sex: Female

DRUGS (1)
  1. RECLAST [Suspect]
     Dosage: 5 MG, ONCE/SINGLE
     Dates: start: 20080201

REACTIONS (6)
  - ANXIETY [None]
  - HEADACHE [None]
  - HEARING IMPAIRED [None]
  - MYALGIA [None]
  - PYREXIA [None]
  - TINNITUS [None]
